FAERS Safety Report 4739226-6 (Version None)
Quarter: 2005Q3

REPORT INFORMATION
  Report Type: 
  Country: None (occurrence: None)
  Receive Date: 20050810
  Receipt Date: 20050527
  Transmission Date: 20060218
  Serious: No
  Sender: FDA-Public Use
  Company Number: US-GLAXOSMITHKLINE-A0560409A

PATIENT
  Age: 25 Year
  Sex: Male

DRUGS (3)
  1. PAXIL CR [Suspect]
     Indication: MAJOR DEPRESSION
     Dosage: 37.5MG PER DAY
     Route: 048
     Dates: start: 20030601, end: 20050501
  2. PAXIL [Suspect]
     Indication: MAJOR DEPRESSION
     Dosage: 40MG PER DAY
     Route: 048
     Dates: start: 20050501
  3. NO CONCURRENT MEDICATION [Concomitant]

REACTIONS (6)
  - DIZZINESS [None]
  - DRUG WITHDRAWAL SYNDROME [None]
  - HYPOAESTHESIA [None]
  - PARAESTHESIA [None]
  - SOMNOLENCE [None]
  - TREMOR [None]
